FAERS Safety Report 11126595 (Version 4)
Quarter: 2015Q4

REPORT INFORMATION
  Report Type: Report from Study
  Country: KE (occurrence: KE)
  Receive Date: 20150520
  Receipt Date: 20151109
  Transmission Date: 20160304
  Serious: Yes (Hospitalization, Other)
  Sender: FDA-Public Use
  Company Number: KE-GILEAD-2015-0153675

PATIENT
  Age: 25 Year
  Sex: Female
  Weight: 69 kg

DRUGS (11)
  1. EMTRICITABINE/TENOFOVIR DISOPROXIL FUMARATE [Suspect]
     Active Substance: EMTRICITABINE\TENOFOVIR DISOPROXIL
     Indication: PROPHYLAXIS AGAINST HIV INFECTION
     Dosage: UNK
     Route: 065
     Dates: start: 20140409, end: 20150427
  2. CELESTAMINE [Concomitant]
     Active Substance: BETAMETHASONE\DEXCHLORPHENIRAMINE MALEATE
     Indication: RHINORRHOEA
     Dosage: 1 UNK, UNK
     Route: 065
     Dates: start: 20150427, end: 20150502
  3. TETANUS TOXOID [Concomitant]
     Active Substance: CLOSTRIDIUM TETANI TOXOID ANTIGEN (FORMALDEHYDE INACTIVATED)
     Indication: PROPHYLAXIS
     Dosage: 0.5 ML, UNK
     Route: 065
     Dates: start: 20150623, end: 20150623
  4. SULFADOXINE PYRIME [Concomitant]
     Indication: PROPHYLAXIS
     Dosage: 500MG/25MG
     Route: 065
     Dates: start: 20150515, end: 20150515
  5. SULFADOXINE PYRIME [Concomitant]
     Dosage: 500MG/25MG
     Route: 065
     Dates: start: 20150728, end: 20150728
  6. SULFADOXINE PYRIME [Concomitant]
     Dosage: 500MG/25MG
     Route: 065
     Dates: start: 20150901, end: 20150901
  7. GENTAMYCIN                         /00047101/ [Concomitant]
     Active Substance: GENTAMICIN
     Indication: CONJUNCTIVITIS
     Dosage: UNK
     Route: 047
     Dates: start: 20150427, end: 20150502
  8. FOLIC ACID. [Concomitant]
     Active Substance: FOLIC ACID
     Indication: PROPHYLAXIS
     Dosage: UNK
     Route: 065
     Dates: start: 20150405, end: 20150908
  9. CHLORPHENIRAMINE                   /00072501/ [Concomitant]
     Active Substance: CHLORPHENIRAMINE
     Indication: RHINORRHOEA
     Dosage: UNK
     Route: 065
     Dates: start: 20150603, end: 20150608
  10. FERROUS SULFATE [Concomitant]
     Active Substance: FERROUS SULFATE\FERROUS SULFATE, DRIED
     Indication: PROPHYLAXIS
     Dosage: 200 MG, UNK
     Route: 065
     Dates: start: 20150405, end: 20150908
  11. SULFADOXINE PYRIME [Concomitant]
     Dosage: 500MG/25MG
     Route: 065
     Dates: start: 20150629, end: 20150629

REACTIONS (2)
  - Pregnancy [Recovered/Resolved]
  - Malaria [Recovered/Resolved]

NARRATIVE: CASE EVENT DATE: 20141206
